FAERS Safety Report 7515050-6 (Version None)
Quarter: 2011Q2

REPORT INFORMATION
  Report Type: 
  Country: None (occurrence: None)
  Receive Date: 20110601
  Receipt Date: 20110524
  Transmission Date: 20111010
  Serious: Yes (Other)
  Sender: FDA-Public Use
  Company Number: JP-ASTELLAS-2011JP003459

PATIENT
  Age: 10 Year
  Sex: Male

DRUGS (4)
  1. PROGRAF [Suspect]
     Indication: PROPHYLAXIS AGAINST TRANSPLANT REJECTION
     Dosage: 0.03 MG/KG, UNKNOWN/D
     Route: 065
  2. PROGRAF [Suspect]
     Dosage: 0.1 MG/KG, UNKNOWN/D
     Route: 048
  3. STEROID [Concomitant]
     Indication: PROPHYLAXIS AGAINST TRANSPLANT REJECTION
     Route: 065
  4. THYMOGLOBULIN [Concomitant]
     Indication: IMMUNOSUPPRESSION
     Route: 065

REACTIONS (2)
  - OFF LABEL USE [None]
  - INFLUENZA [None]
